FAERS Safety Report 4990770-6 (Version None)
Quarter: 2006Q2

REPORT INFORMATION
  Report Type: 
  Country: None (occurrence: None)
  Receive Date: 20060503
  Receipt Date: 20060411
  Transmission Date: 20061013
  Serious: Yes (Disabling)
  Sender: FDA-Public Use
  Company Number: AU-BOEHRINGER INGELHEIM PHARMACEUTICALS, INC.-2006-BP-04516AU

PATIENT
  Sex: Female
  Weight: 85 kg

DRUGS (3)
  1. MOBIC [Suspect]
     Indication: ARTHRITIS
     Route: 048
     Dates: start: 20050901, end: 20060330
  2. HYSONE [Concomitant]
     Indication: ADRENAL INSUFFICIENCY
     Route: 048
     Dates: start: 19960101
  3. ATACAND [Concomitant]
     Indication: HYPERTENSION
     Route: 048
     Dates: start: 20051201

REACTIONS (1)
  - RENAL FAILURE CHRONIC [None]
